FAERS Safety Report 11242333 (Version 1)
Quarter: 2015Q3

REPORT INFORMATION
  Report Type: Spontaneous
  Country: US (occurrence: US)
  Receive Date: 20150707
  Receipt Date: 20150707
  Transmission Date: 20151125
  Serious: Yes (Hospitalization, Other)
  Sender: FDA-Public Use
  Company Number: US-AMGEN-USASP2015065463

PATIENT
  Age: 44 Year
  Sex: Female

DRUGS (1)
  1. ENBREL [Suspect]
     Active Substance: ETANERCEPT
     Indication: PSORIATIC ARTHROPATHY
     Dosage: 25 MG, QWK
     Route: 065

REACTIONS (10)
  - Wound [Recovered/Resolved]
  - Perirectal abscess [Recovered/Resolved]
  - Alopecia [Unknown]
  - Injection site pruritus [Recovered/Resolved]
  - Urinary tract infection [Recovered/Resolved]
  - Psoriasis [Unknown]
  - Renal failure [Recovered/Resolved]
  - Rheumatoid arthritis [Unknown]
  - Injection site pain [Recovered/Resolved]
  - Injection site swelling [Recovered/Resolved]

NARRATIVE: CASE EVENT DATE: 2003
